FAERS Safety Report 4501151-3 (Version None)
Quarter: 2004Q4

REPORT INFORMATION
  Report Type: 
  Country: None (occurrence: None)
  Receive Date: 20041109
  Receipt Date: 20041026
  Transmission Date: 20050328
  Serious: Yes (Hospitalization, Other)
  Sender: FDA-Public Use
  Company Number: GBS041015825

PATIENT
  Age: 62 Year
  Sex: Female
  Weight: 90 kg

DRUGS (8)
  1. FLUOXETINE [Suspect]
     Indication: DEPRESSION
     Dosage: 20 MG
     Dates: start: 20040801, end: 20041016
  2. LANSOPRAZOLE [Concomitant]
  3. FOLIC ACID [Concomitant]
  4. PENICILLIN V [Concomitant]
  5. SENNA [Concomitant]
  6. ALENDRONATE SODIUM [Concomitant]
  7. CO-CODAMOL [Concomitant]
  8. LEVOTHYROXINE SODIUM [Concomitant]

REACTIONS (3)
  - APLASIA PURE RED CELL [None]
  - LYMPHOMA [None]
  - NEOPLASM RECURRENCE [None]
